FAERS Safety Report 6397408-4 (Version None)
Quarter: 2009Q4

REPORT INFORMATION
  Report Type: 
  Country: None (occurrence: None)
  Receive Date: 20091012
  Receipt Date: 20090930
  Transmission Date: 20100525
  Serious: Yes (Hospitalization)
  Sender: FDA-Public Use
  Company Number: PHHY2009GB05038

PATIENT
  Sex: Female
  Weight: 32.8 kg

DRUGS (11)
  1. ACLASTA [Suspect]
     Indication: OSTEOPOROSIS
     Dosage: 5 MG, UNK
     Dates: start: 20081212
  2. ACLASTA [Suspect]
     Dosage: UNK
     Dates: start: 20081201
  3. CITALOPRAM HYDROBROMIDE [Concomitant]
     Indication: DEPRESSION
     Dosage: 20 MG DAILY
     Route: 048
  4. TIOTROPIUM [Concomitant]
     Indication: CHRONIC OBSTRUCTIVE PULMONARY DISEASE
     Dosage: 2 TABLETS DAILY
  5. ADCAL-D3 [Concomitant]
     Indication: OSTEOPOROSIS
     Dosage: 2 TABLETS DAILY
     Route: 048
  6. OMEPRAZOLE [Concomitant]
     Indication: PEPTIC ULCER
     Dosage: 20MG DAILY
     Route: 048
  7. LISINOPRIL [Concomitant]
     Indication: MYOCARDIAL ISCHAEMIA
     Dosage: 5MG DAILY
     Route: 048
  8. ASPIRIN [Concomitant]
     Indication: MYOCARDIAL ISCHAEMIA
     Dosage: 75MG DAILY
     Route: 048
  9. VENTOLIN [Concomitant]
     Indication: CHRONIC OBSTRUCTIVE PULMONARY DISEASE
     Dosage: 2 DF DAILY
  10. THEOPHYLLINE [Concomitant]
     Indication: CHRONIC OBSTRUCTIVE PULMONARY DISEASE
     Dosage: 1 TABLET DAILY
     Route: 048
  11. NICOTINE [Concomitant]

REACTIONS (3)
  - DYSPNOEA [None]
  - MECHANICAL VENTILATION [None]
  - RESPIRATORY FAILURE [None]
